FAERS Safety Report 4735600-2 (Version None)
Quarter: 2005Q3

REPORT INFORMATION
  Report Type: 
  Country: None (occurrence: None)
  Receive Date: 20050801
  Receipt Date: 20050801
  Transmission Date: 20060218
  Serious: No
  Sender: FDA-Public Use
  Company Number: None

PATIENT
  Age: 56 Year
  Sex: Male
  Weight: 41.7 kg

DRUGS (7)
  1. PRIMAQUINE [Suspect]
     Indication: PNEUMOCYSTIS JIROVECI PNEUMONIA
     Dosage: 52.6 PO QD
     Route: 048
     Dates: start: 20041218, end: 20041221
  2. CLINDAMYCIN [Concomitant]
  3. ZOSYN [Concomitant]
  4. AZITHROMYCIN [Concomitant]
  5. FLUCONAZOLE [Concomitant]
  6. PREDNISONE [Concomitant]
  7. OMEPRAZOLE [Concomitant]

REACTIONS (1)
  - BLOOD METHAEMOGLOBIN PRESENT [None]
